FAERS Safety Report 24393099 (Version 2)
Quarter: 2024Q4

REPORT INFORMATION
  Report Type: Report from Study
  Country: GR (occurrence: GR)
  Receive Date: 20241003
  Receipt Date: 20241231
  Transmission Date: 20250114
  Serious: Yes (Hospitalization, Other)
  Sender: GLAXOSMITHKLINE
  Company Number: GR-GLAXOSMITHKLINE-GR2024EME119644

PATIENT

DRUGS (8)
  1. MEPOLIZUMAB [Suspect]
     Active Substance: MEPOLIZUMAB
     Indication: Asthma
     Dosage: UNK UNK, MO, UNK MG 1 INJ PER MONTH
     Dates: start: 2019
  2. MEPOLIZUMAB [Suspect]
     Active Substance: MEPOLIZUMAB
     Indication: Fibrosis
  3. MEPOLIZUMAB [Suspect]
     Active Substance: MEPOLIZUMAB
     Indication: Asthma
  4. CREON [Concomitant]
     Active Substance: PANCRELIPASE AMYLASE\PANCRELIPASE LIPASE\PANCRELIPASE PROTEASE
     Indication: Neoplasm malignant
     Dosage: 1 DF, QD
  5. LOSEC [Concomitant]
     Active Substance: OMEPRAZOLE
     Indication: Neoplasm malignant
     Dosage: 1 DF, QD
  6. FOSTER [Concomitant]
     Active Substance: BECLOMETHASONE\FORMOTEROL
     Indication: Asthma
     Dosage: 2 DF, QD
  7. FOSTER [Concomitant]
     Active Substance: BECLOMETHASONE\FORMOTEROL
     Dosage: 1 DF, QD, IN WINTER
  8. BILAZ [Concomitant]
     Indication: Multiple allergies
     Dosage: UNK, OCCASIONALLY

REACTIONS (9)
  - Pancreatic carcinoma [Recovered/Resolved]
  - Lower respiratory tract infection [Unknown]
  - Dyspnoea [Unknown]
  - Sputum discoloured [Unknown]
  - Upper respiratory tract infection [Unknown]
  - SARS-CoV-2 test positive [Unknown]
  - COVID-19 [Not Recovered/Not Resolved]
  - Respiratory tract infection [Not Recovered/Not Resolved]
  - Product use in unapproved indication [Unknown]

NARRATIVE: CASE EVENT DATE: 20240920
